FAERS Safety Report 24953612 (Version 1)
Quarter: 2025Q1

REPORT INFORMATION
  Report Type: Spontaneous
  Country: ES (occurrence: ES)
  Receive Date: 20250211
  Receipt Date: 20250211
  Transmission Date: 20250408
  Serious: No
  Sender: TAKEDA
  Company Number: ES-TAKEDA-2025TUS012481

PATIENT
  Age: 28 Year
  Sex: Female

DRUGS (1)
  1. HYQVIA [Suspect]
     Active Substance: HUMAN IMMUNOGLOBULIN G\HYALURONIDASE (HUMAN RECOMBINANT)
     Indication: Product used for unknown indication
     Dosage: 35 GRAM, Q4WEEKS
     Dates: start: 2018

REACTIONS (3)
  - Nodule [Unknown]
  - Device occlusion [Unknown]
  - Incorrect product administration duration [Unknown]
